FAERS Safety Report 5958903-2 (Version None)
Quarter: 2008Q4

REPORT INFORMATION
  Report Type: 
  Country: None (occurrence: None)
  Receive Date: 20081118
  Receipt Date: 20081104
  Transmission Date: 20090506
  Serious: Yes (Other)
  Sender: FDA-Public Use
  Company Number: PAR_02416_2008

PATIENT
  Sex: Female

DRUGS (1)
  1. MEGACE ES [Suspect]
     Indication: WEIGHT DECREASED
     Dosage: 5 ML ORAL
     Route: 048
     Dates: start: 20050101, end: 20050101

REACTIONS (1)
  - VAGINAL HAEMORRHAGE [None]
